FAERS Safety Report 8330462-9 (Version None)
Quarter: 2012Q2

REPORT INFORMATION
  Report Type: 
  Country: None (occurrence: None)
  Receive Date: 20120502
  Receipt Date: 20120402
  Transmission Date: 20120825
  Serious: Yes (Hospitalization, Other)
  Sender: FDA-Public Use
  Company Number: US-AMGEN-USASP2012020920

PATIENT
  Age: 63 Year
  Sex: Female

DRUGS (3)
  1. ENBREL [Suspect]
     Indication: RHEUMATOID ARTHRITIS
     Dosage: 50 MG, QWK
     Dates: start: 20120118, end: 20120101
  2. CIMZIA [Concomitant]
     Dosage: UNK
  3. SODIUM HYALURONATE [Concomitant]
     Dosage: UNK

REACTIONS (1)
  - CARDIAC FAILURE [None]
